FAERS Safety Report 17944869 (Version 3)
Quarter: 2021Q2

REPORT INFORMATION
  Report Type: Spontaneous
  Country: FR (occurrence: FR)
  Receive Date: 20200626
  Receipt Date: 20210626
  Transmission Date: 20210717
  Serious: Yes (Hospitalization, Other)
  Sender: FDA-Public Use
  Company Number: FR-AUROBINDO-AUR-APL-2019-019482

PATIENT
  Age: 1 Year
  Sex: Female

DRUGS (18)
  1. DALACINE [Suspect]
     Active Substance: CLINDAMYCIN
     Indication: STREPTOCOCCAL INFECTION
     Dosage: 40 MILLIGRAM/KILOGRAM, ONCE A DAY
     Route: 065
  2. CEFTRIAXONE. [Suspect]
     Active Substance: CEFTRIAXONE
     Indication: BETA HAEMOLYTIC STREPTOCOCCAL INFECTION
  3. AMIKACIN SULFATE. [Suspect]
     Active Substance: AMIKACIN SULFATE
     Indication: CELLULITIS
  4. AUGMENTIN BD [Suspect]
     Active Substance: AMOXICILLIN\CLAVULANIC ACID
     Indication: CELLULITIS
  5. AMOXICILLIN/CLAVULANIC ACID [Suspect]
     Active Substance: AMOXICILLIN\CLAVULANIC ACID
     Indication: BETA HAEMOLYTIC STREPTOCOCCAL INFECTION
     Dosage: 100 MILLIGRAM/KILOGRAM, ONCE A DAY
     Route: 042
  6. AMIKACIN SULFATE. [Suspect]
     Active Substance: AMIKACIN SULFATE
     Indication: STREPTOCOCCAL INFECTION
     Dosage: 15 MILLIGRAM/KILOGRAM, ONCE A DAY
     Route: 042
  7. DALACINE [Suspect]
     Active Substance: CLINDAMYCIN
     Indication: CELLULITIS
  8. AMOXICILLIN/CLAVULANIC ACID [Suspect]
     Active Substance: AMOXICILLIN\CLAVULANIC ACID
     Dosage: UNK
     Route: 048
  9. CEFTRIAXONE. [Suspect]
     Active Substance: CEFTRIAXONE
     Indication: LYMPHADENITIS
     Dosage: 100 MILLIGRAM/KILOGRAM, DAILY
  10. AUGMENTIN BD [Suspect]
     Active Substance: AMOXICILLIN\CLAVULANIC ACID
     Indication: LYMPHADENITIS
     Dosage: UNK
     Route: 048
  11. AUGMENTIN BD [Suspect]
     Active Substance: AMOXICILLIN\CLAVULANIC ACID
     Indication: BETA HAEMOLYTIC STREPTOCOCCAL INFECTION
  12. CEFTRIAXONE. [Suspect]
     Active Substance: CEFTRIAXONE
     Indication: CELLULITIS
     Dosage: 100 MILLIGRAM, ONCE A DAY
     Route: 042
  13. AMIKACIN SULFATE. [Suspect]
     Active Substance: AMIKACIN SULFATE
     Indication: LYMPHADENITIS
  14. AMIKACIN SULFATE. [Suspect]
     Active Substance: AMIKACIN SULFATE
     Indication: BETA HAEMOLYTIC STREPTOCOCCAL INFECTION
  15. CEFTRIAXONE. [Suspect]
     Active Substance: CEFTRIAXONE
     Indication: OSTEOMYELITIS
     Dosage: 50 MILLIGRAM/KILOGRAM, ONCE A DAY (LATER, THE DOSE WAS DOUBLED)
     Route: 042
  16. AUGMENTIN BD [Suspect]
     Active Substance: AMOXICILLIN\CLAVULANIC ACID
     Indication: STREPTOCOCCAL INFECTION
     Dosage: 100 MILLIGRAM/KILOGRAM, ONCE A DAY
     Route: 042
  17. DALACINE [Suspect]
     Active Substance: CLINDAMYCIN
     Indication: LYMPHADENITIS
  18. DALACINE [Suspect]
     Active Substance: CLINDAMYCIN
     Indication: OSTEOMYELITIS

REACTIONS (3)
  - Osteomyelitis [Unknown]
  - Pyrexia [Recovered/Resolved]
  - Urticaria [Recovering/Resolving]
